FAERS Safety Report 4947832-9 (Version None)
Quarter: 2006Q1

REPORT INFORMATION
  Report Type: 
  Country: None (occurrence: None)
  Receive Date: 20060317
  Receipt Date: 20060317
  Transmission Date: 20060701
  Serious: Yes (Other)
  Sender: FDA-Public Use
  Company Number: None

PATIENT
  Age: 30 Year
  Sex: Female
  Weight: 63.5036 kg

DRUGS (1)
  1. AMBIEN [Suspect]
     Indication: INSOMNIA
     Dosage: 10 MG  -I THINK-  NIGHTLY  PO
     Route: 048
     Dates: start: 20060220, end: 20060303

REACTIONS (2)
  - ABNORMAL SLEEP-RELATED EVENT [None]
  - AMNESIA [None]
